FAERS Safety Report 9549339 (Version 1)
Quarter: 2013Q3

REPORT INFORMATION
  Report Type: Spontaneous
  Country: US (occurrence: US)
  Receive Date: 20130924
  Receipt Date: 20130924
  Transmission Date: 20140515
  Serious: Yes (Other)
  Sender: FDA-Public Use
  Company Number: US-PFIZER INC-2013270302

PATIENT
  Age: 4 Year
  Sex: Female

DRUGS (1)
  1. CLINDAMYCIN PALMITATE HCL [Suspect]
     Indication: INFECTION
     Dosage: 13.5 ML, 3X/DAY
     Dates: start: 20130917

REACTIONS (1)
  - Choking [Unknown]
